FAERS Safety Report 6457442-2 (Version None)
Quarter: 2009Q4

REPORT INFORMATION
  Report Type: 
  Country: None (occurrence: None)
  Receive Date: 20091120
  Receipt Date: 20091112
  Transmission Date: 20100525
  Serious: Yes (Other)
  Sender: FDA-Public Use
  Company Number: SPV1-2009-02286

PATIENT
  Age: 58 Year
  Sex: Male

DRUGS (1)
  1. ANAGRELIDE HCL [Suspect]
     Indication: ESSENTIAL THROMBOCYTHAEMIA
     Dosage: ORAL
     Route: 048
     Dates: start: 20030101

REACTIONS (2)
  - GLOMERULONEPHRITIS [None]
  - TUBULOINTERSTITIAL NEPHRITIS [None]
